FAERS Safety Report 8744114 (Version 2)
Quarter: 2014Q2

REPORT INFORMATION
  Report Type: Spontaneous
  Country: US (occurrence: US)
  Receive Date: 20120824
  Receipt Date: 20140613
  Transmission Date: 20141212
  Serious: No
  Sender: FDA-Public Use
  Company Number: US-ASTRAZENECA-2012SE57362

PATIENT
  Age: 589 Month
  Sex: Male
  Weight: 77.1 kg

DRUGS (7)
  1. NEXIUM [Suspect]
     Indication: GASTROOESOPHAGEAL REFLUX DISEASE
     Route: 048
     Dates: end: 201208
  2. NEXIUM [Suspect]
     Indication: GASTROOESOPHAGEAL REFLUX DISEASE
     Route: 048
     Dates: start: 2013
  3. TYLENOL WITH CODEINE [Concomitant]
     Indication: HEADACHE
  4. TYLENOL WITH CODEINE [Concomitant]
     Indication: BACK PAIN
  5. FLEXERIL [Concomitant]
     Indication: MUSCLE SPASMS
  6. KLONOPIN [Concomitant]
     Indication: NEURALGIA
  7. ZYRTEC [Concomitant]
     Indication: HYPERSENSITIVITY

REACTIONS (5)
  - Gastrooesophageal reflux disease [Unknown]
  - Drug dose omission [Unknown]
  - Regurgitation [Unknown]
  - Weight decreased [Unknown]
  - Abdominal discomfort [Unknown]
